FAERS Safety Report 6200000-5 (Version None)
Quarter: 2009Q2

REPORT INFORMATION
  Report Type: 
  Country: None (occurrence: None)
  Receive Date: 20090522
  Receipt Date: 20090515
  Transmission Date: 20091009
  Serious: Yes (Hospitalization)
  Sender: FDA-Public Use
  Company Number: US-ABBOTT-09P-163-0574741-00

PATIENT
  Age: 60 Year
  Sex: Male

DRUGS (2)
  1. WARFARIN SODIUM [Suspect]
     Indication: CARDIAC OPERATION
  2. WARFARIN SODIUM [Suspect]

REACTIONS (4)
  - COMPARTMENT SYNDROME [None]
  - LIMB INJURY [None]
  - MUSCLE HAEMORRHAGE [None]
  - MUSCLE NECROSIS [None]
